FAERS Safety Report 7339641-0 (Version None)
Quarter: 2011Q1

REPORT INFORMATION
  Report Type: 
  Country: None (occurrence: None)
  Receive Date: 20110308
  Receipt Date: 20110301
  Transmission Date: 20110831
  Serious: Yes (Death, Hospitalization)
  Sender: FDA-Public Use
  Company Number: US-GILEAD-2010-0034284

PATIENT
  Sex: Male

DRUGS (3)
  1. LETAIRIS [Suspect]
     Indication: SARCOIDOSIS
  2. LETAIRIS [Suspect]
     Indication: PULMONARY HYPERTENSION
     Route: 048
     Dates: start: 20080805, end: 20101213
  3. LETAIRIS [Suspect]
     Indication: HYPOXIA

REACTIONS (3)
  - ACUTE RESPIRATORY FAILURE [None]
  - COR PULMONALE [None]
  - LOSS OF CONSCIOUSNESS [None]
